FAERS Safety Report 18570353 (Version 1)
Quarter: 2020Q4

REPORT INFORMATION
  Report Type: Spontaneous
  Country: US (occurrence: US)
  Receive Date: 20201202
  Receipt Date: 20201202
  Transmission Date: 20210114
  Serious: No
  Sender: FDA-Public Use
  Company Number: US-009507513-2012USA000055

PATIENT
  Sex: Female

DRUGS (1)
  1. NEXPLANON [Suspect]
     Active Substance: ETONOGESTREL
     Indication: CONTRACEPTION
     Dosage: 1 IMPLANT (68MG), ONCE
     Route: 059
     Dates: start: 201809, end: 201810

REACTIONS (4)
  - Dizziness [Unknown]
  - Headache [Unknown]
  - Mood swings [Unknown]
  - Nausea [Unknown]

NARRATIVE: CASE EVENT DATE: 2018
